FAERS Safety Report 9349588 (Version 1)
Quarter: 2013Q2

REPORT INFORMATION
  Report Type: Spontaneous
  Country: TR (occurrence: None)
  Receive Date: 20130611
  Receipt Date: 20130611
  Transmission Date: 20140414
  Serious: Yes (Hospitalization, Other)
  Sender: FDA-Public Use
  Company Number: IMP_06716_2013

PATIENT
  Age: 36 Year
  Sex: Female

DRUGS (1)
  1. BUPROPION [Suspect]
     Indication: SMOKING CESSATION THERAPY
     Route: 048

REACTIONS (6)
  - Headache [None]
  - Somnolence [None]
  - Grand mal convulsion [None]
  - Status epilepticus [None]
  - Toxicity to various agents [None]
  - Incorrect dose administered [None]
